FAERS Safety Report 7986860-6 (Version None)
Quarter: 2011Q4

REPORT INFORMATION
  Report Type: 
  Country: None (occurrence: None)
  Receive Date: 20111216
  Receipt Date: 20110302
  Transmission Date: 20120403
  Serious: No
  Sender: FDA-Public Use
  Company Number: US-BRISTOL-MYERS SQUIBB COMPANY-15578859

PATIENT
  Age: 8 Year
  Sex: Male
  Weight: 48 kg

DRUGS (1)
  1. ABILIFY [Suspect]
     Indication: DEPRESSION
     Dates: start: 20080101

REACTIONS (11)
  - HEADACHE [None]
  - ABDOMINAL DISCOMFORT [None]
  - INFLUENZA LIKE ILLNESS [None]
  - EPISTAXIS [None]
  - VISION BLURRED [None]
  - ASTHENIA [None]
  - GAIT DISTURBANCE [None]
  - MUSCULOSKELETAL STIFFNESS [None]
  - NAUSEA [None]
  - WEIGHT INCREASED [None]
  - VOMITING [None]
